FAERS Safety Report 6319562-2 (Version None)
Quarter: 2009Q3

REPORT INFORMATION
  Report Type: 
  Country: None (occurrence: None)
  Receive Date: 20090822
  Receipt Date: 20080918
  Transmission Date: 20100115
  Serious: No
  Sender: FDA-Public Use
  Company Number: US-ABBOTT-08P-163-0476842-00

PATIENT
  Sex: Female
  Weight: 50.394 kg

DRUGS (3)
  1. NIASPAN [Suspect]
     Indication: BLOOD CHOLESTEROL INCREASED
     Route: 048
     Dates: start: 20080501
  2. PLANT STEROLS [Suspect]
     Indication: BLOOD CHOLESTEROL INCREASED
     Route: 048
  3. ATENOLOL [Concomitant]
     Indication: HYPERTENSION

REACTIONS (4)
  - HEPATIC ENZYME INCREASED [None]
  - PRURITUS [None]
  - RASH [None]
  - WEIGHT DECREASED [None]
